FAERS Safety Report 7105756-5 (Version None)
Quarter: 2010Q4

REPORT INFORMATION
  Report Type: 
  Country: None (occurrence: None)
  Receive Date: 20101116
  Receipt Date: 20101105
  Transmission Date: 20110411
  Serious: Yes (Other)
  Sender: FDA-Public Use
  Company Number: FR-TEVA-255180ISR

PATIENT
  Sex: Male

DRUGS (12)
  1. AZILECT [Suspect]
     Route: 048
     Dates: start: 20100301, end: 20100603
  2. MADOPAR                            /00349201/ [Concomitant]
  3. STALEVO 100 [Concomitant]
  4. ROPINIROLE HYDROCHLORIDE [Concomitant]
  5. CLOBAZAM [Concomitant]
  6. PAROXETINE HYDROCHLORIDE [Concomitant]
  7. MODURETIC 5-50 [Concomitant]
  8. POTASSIUM CHLORIDE [Concomitant]
  9. PARACETAMOL [Concomitant]
  10. PERINDOPRIL [Concomitant]
     Dates: start: 20100517
  11. ALLOPURINOL [Concomitant]
  12. TAMSULOSIN HYDROCHLORIDE [Concomitant]
     Dates: start: 20100507

REACTIONS (6)
  - OEDEMA [None]
  - PROTEINURIA [None]
  - RASH [None]
  - SKIN ULCER [None]
  - SYSTEMIC INFLAMMATORY RESPONSE SYNDROME [None]
  - VASCULITIS [None]
